FAERS Safety Report 5540626-5 (Version None)
Quarter: 2007Q4

REPORT INFORMATION
  Report Type: 
  Country: None (occurrence: None)
  Receive Date: 20071129
  Receipt Date: 20070424
  Transmission Date: 20080405
  Serious: Yes (Hospitalization, Other)
  Sender: FDA-Public Use
  Company Number: US200703002426

PATIENT
  Age: 54 Year
  Sex: Female
  Weight: 104.3 kg

DRUGS (8)
  1. ZYPREXA [Suspect]
     Dosage: 2.5 MG; 10 MG
     Dates: start: 19991201, end: 20041001
  2. ZYPREXA [Suspect]
     Dosage: 2.5 MG; 10 MG
     Dates: start: 20041001, end: 20050801
  3. ABILIFY [Concomitant]
  4. RISPERIDONE [Concomitant]
  5. HALDOL (HALOPERIDOL DECANOATE) [Concomitant]
  6. WELLBUTRIN [Concomitant]
  7. PROZAC [Concomitant]
  8. REMERON [Concomitant]

REACTIONS (5)
  - DIABETES MELLITUS [None]
  - DIABETIC COMA [None]
  - DIABETIC KETOACIDOSIS [None]
  - METABOLIC DISORDER [None]
  - PANCREATITIS [None]
